FAERS Safety Report 25886683 (Version 1)
Quarter: 2025Q4

REPORT INFORMATION
  Report Type: Spontaneous
  Country: US (occurrence: None)
  Receive Date: 20251005
  Receipt Date: 20251005
  Transmission Date: 20260118
  Serious: Yes (Other)
  Sender: FDA-CTU
  Company Number: None

PATIENT
  Age: 62 Year
  Sex: Female

DRUGS (13)
  1. NEXLETOL [Suspect]
     Active Substance: BEMPEDOIC ACID
     Indication: Blood cholesterol increased
     Dosage: OTHER QUANTITY : 1 CAPSULE(S);?FREQUENCY : DAILY;?
     Route: 048
     Dates: start: 20250122, end: 20250709
  2. DOXYCYCLINE [Concomitant]
     Active Substance: DOXYCYCLINE
  3. FLAGYL [Concomitant]
     Active Substance: METRONIDAZOLE\METRONIDAZOLE HYDROCHLORIDE
  4. Amox/K Cav [Concomitant]
  5. LOW DOSE ASPIRIN [Concomitant]
     Active Substance: ASPIRIN
  6. Pro biotic [Concomitant]
  7. ZINC [Concomitant]
     Active Substance: ZINC
  8. SELENIUM [Concomitant]
     Active Substance: SELENIUM
  9. VITAMIN D NOS [Concomitant]
     Active Substance: CHOLECALCIFEROL\ERGOCALCIFEROL
  10. VITAMIN C [Concomitant]
     Active Substance: ASCORBIC ACID
  11. FISH OIL [Concomitant]
     Active Substance: FISH OIL
  12. quercetin phytosome [Concomitant]
  13. MAGNESIUM [Concomitant]
     Active Substance: MAGNESIUM

REACTIONS (2)
  - Diverticulitis [None]
  - Pain [None]

NARRATIVE: CASE EVENT DATE: 20250418
